FAERS Safety Report 7734882-2 (Version None)
Quarter: 2011Q3

REPORT INFORMATION
  Report Type: 
  Country: None (occurrence: None)
  Receive Date: 20110907
  Receipt Date: 20110825
  Transmission Date: 20111222
  Serious: Yes (Other)
  Sender: FDA-Public Use
  Company Number: PHHY2011JP76540

PATIENT
  Age: 80 Year
  Sex: Male

DRUGS (1)
  1. NEORAL [Suspect]
     Indication: APLASTIC ANAEMIA
     Dosage: 250 MG, DAILY IN TWO DIVIDED DOSES
     Route: 048

REACTIONS (1)
  - DEMENTIA [None]
